FAERS Safety Report 5958822-1 (Version None)
Quarter: 2008Q4

REPORT INFORMATION
  Report Type: 
  Country: None (occurrence: None)
  Receive Date: 20081119
  Receipt Date: 20060710
  Transmission Date: 20090506
  Serious: Yes (Other)
  Sender: FDA-Public Use
  Company Number: DE-GENENTECH-271741

PATIENT
  Sex: Female

DRUGS (2)
  1. PULMOZYME [Suspect]
     Indication: CYSTIC FIBROSIS
     Dosage: 2.5 MG, QD
     Dates: start: 20060517, end: 20060522
  2. CONTRACEPTIVE [Concomitant]
     Indication: DRUG USE FOR UNKNOWN INDICATION

REACTIONS (1)
  - OBSTRUCTIVE AIRWAYS DISORDER [None]
